FAERS Safety Report 6220977-1 (Version None)
Quarter: 2009Q2

REPORT INFORMATION
  Report Type: 
  Country: None (occurrence: None)
  Receive Date: 20090605
  Receipt Date: 20090602
  Transmission Date: 20091009
  Serious: Yes (Hospitalization)
  Sender: FDA-Public Use
  Company Number: FR-WYE-G03760109

PATIENT
  Age: 12 Year
  Sex: Female

DRUGS (2)
  1. ADVIL ENFANTS ET NOURRISSONS (IBUPROFEN, SUSPENSION) [Suspect]
     Indication: INFLUENZA
     Dosage: 1 DOSE 1X PER 6 HR ORAL
     Route: 048
     Dates: start: 20090201, end: 20090201
  2. ACETAMINOPHEN [Concomitant]

REACTIONS (10)
  - ABDOMINAL PAIN [None]
  - CONSTIPATION [None]
  - DECREASED APPETITE [None]
  - INFLAMMATION [None]
  - KIDNEY ENLARGEMENT [None]
  - KIDNEY FIBROSIS [None]
  - RENAL FAILURE ACUTE [None]
  - TUBULOINTERSTITIAL NEPHRITIS [None]
  - WEIGHT DECREASED [None]
  - WHITE BLOOD CELL COUNT INCREASED [None]
